FAERS Safety Report 17988202 (Version 1)
Quarter: 2020Q3

REPORT INFORMATION
  Report Type: Spontaneous
  Country: JP (occurrence: JP)
  Receive Date: 20200707
  Receipt Date: 20200707
  Transmission Date: 20201103
  Serious: Yes (Other)
  Sender: FDA-Public Use
  Company Number: JP-ORION CORPORATION ORION PHARMA-ENTC2020-0196

PATIENT
  Sex: Male

DRUGS (1)
  1. STALEVO [Suspect]
     Active Substance: CARBIDOPA\ENTACAPONE\LEVODOPA
     Indication: PARKINSON^S DISEASE
     Route: 048
     Dates: start: 20200605

REACTIONS (6)
  - Chromaturia [Unknown]
  - Blood pressure decreased [Unknown]
  - Night sweats [Unknown]
  - Hallucination [Unknown]
  - Disorientation [Unknown]
  - Constipation [Unknown]

NARRATIVE: CASE EVENT DATE: 2020
